FAERS Safety Report 25366172 (Version 2)
Quarter: 2025Q2

REPORT INFORMATION
  Report Type: Spontaneous
  Country: PT (occurrence: PT)
  Receive Date: 20250528
  Receipt Date: 20250620
  Transmission Date: 20250716
  Serious: Yes (Life-Threatening, Hospitalization)
  Sender: MERCK SHARP & DOHME LLC
  Company Number: None

PATIENT
  Age: 65 Year
  Sex: Female
  Weight: 61 kg

DRUGS (4)
  1. KEYTRUDA [Suspect]
     Active Substance: PEMBROLIZUMAB
     Indication: Clear cell renal cell carcinoma
     Dosage: 200MG EVERY 21 DAYS
     Route: 042
     Dates: start: 20231117, end: 20241022
  2. TOPIRAMATE [Concomitant]
     Active Substance: TOPIRAMATE
     Route: 065
  3. PROPRANOLOL [Concomitant]
     Active Substance: PROPRANOLOL HYDROCHLORIDE
     Route: 065
  4. SIMVASTATIN [Concomitant]
     Active Substance: SIMVASTATIN
     Route: 065

REACTIONS (2)
  - Hepatitis [Recovered/Resolved]
  - Gastritis [Recovering/Resolving]

NARRATIVE: CASE EVENT DATE: 20241219
